FAERS Safety Report 20484874 (Version 4)
Quarter: 2022Q4

REPORT INFORMATION
  Report Type: Spontaneous
  Country: DE (occurrence: DE)
  Receive Date: 20220217
  Receipt Date: 20221229
  Transmission Date: 20230112
  Serious: Yes (Life-Threatening, Hospitalization, Other)
  Sender: FDA-Public Use
  Company Number: DE-NOVPHSZ-PHHY2018DE154593

PATIENT
  Age: 59 Year
  Sex: Female
  Weight: 92 kg

DRUGS (17)
  1. HERCEPTIN [Suspect]
     Active Substance: TRASTUZUMAB
     Indication: Breast cancer
     Dosage: UNK
     Route: 065
  2. VALSARTAN [Suspect]
     Active Substance: VALSARTAN
     Indication: Essential hypertension
     Dosage: UNK, QD
     Route: 065
  3. VALSARTAN [Suspect]
     Active Substance: VALSARTAN
     Dosage: 320 MG, QD, VALSARTAN, (1-0-0)
     Route: 065
     Dates: start: 201503
  4. VALSARTAN [Suspect]
     Active Substance: VALSARTAN
     Dosage: 160 MG, QD
     Route: 065
  5. VALSARTAN [Suspect]
     Active Substance: VALSARTAN
     Route: 065
     Dates: start: 2011
  6. VALSARTAN [Suspect]
     Active Substance: VALSARTAN
     Route: 065
     Dates: start: 2016, end: 2018
  7. HYDROCHLOROTHIAZIDE\VALSARTAN [Suspect]
     Active Substance: HYDROCHLOROTHIAZIDE\VALSARTAN
     Indication: Essential hypertension
     Dosage: 320/12.5 MG,UNK
     Route: 065
     Dates: start: 20160720
  8. HYDROCHLOROTHIAZIDE\VALSARTAN [Suspect]
     Active Substance: HYDROCHLOROTHIAZIDE\VALSARTAN
     Dosage: 320/12.5 MG,UNK
     Route: 065
     Dates: start: 20180528
  9. VALSARTAN [Suspect]
     Active Substance: VALSARTAN
     Indication: Essential hypertension
     Dosage: UNK
     Route: 065
  10. CHOLECALCIFEROL [Concomitant]
     Active Substance: CHOLECALCIFEROL
     Indication: Product used for unknown indication
     Dosage: 20000 IU, SOFT CAPSULES
     Route: 065
  11. CERTOPARIN SODIUM [Concomitant]
     Active Substance: CERTOPARIN SODIUM
     Indication: Product used for unknown indication
     Dosage: 0.3 ML QD
     Route: 058
  12. CERTOPARIN SODIUM [Concomitant]
     Active Substance: CERTOPARIN SODIUM
     Dosage: UNK, 1X 3000 IU, QD, IN THE MORNING(1-0-0)
     Route: 058
  13. LEVOTHYROXINE SODIUM [Concomitant]
     Active Substance: LEVOTHYROXINE SODIUM
     Indication: Autoimmune thyroiditis
     Dosage: 150 UG, MORNING (1-0-0)
     Route: 065
  14. LEVOTHYROXINE SODIUM [Concomitant]
     Active Substance: LEVOTHYROXINE SODIUM
     Dosage: 175 UG, QD, MORNING (1-0-0)
     Route: 065
  15. METAMIZOLE [Concomitant]
     Active Substance: METAMIZOLE
     Indication: Product used for unknown indication
     Route: 065
  16. PANTOZOL [Concomitant]
     Active Substance: PANTOPRAZOLE SODIUM
     Indication: Product used for unknown indication
     Dosage: 20 MG, QD, IN THE MORNING (1-0-0)
     Route: 065
  17. ANASTROZOLE [Concomitant]
     Active Substance: ANASTROZOLE
     Indication: Product used for unknown indication
     Dosage: 1 MG QD, MORNING (1-0-0)
     Route: 065

REACTIONS (93)
  - Hypoaesthesia [Unknown]
  - Feeling abnormal [Unknown]
  - Fall [Unknown]
  - Bladder cancer [Unknown]
  - Hepatic cancer [Unknown]
  - Gastric ulcer [Unknown]
  - Ankle fracture [Unknown]
  - Flushing [Unknown]
  - Emotional distress [Unknown]
  - Mobility decreased [Recovering/Resolving]
  - Balance disorder [Unknown]
  - Tonsillar hypertrophy [Unknown]
  - Sleep disorder [Unknown]
  - Frequent bowel movements [Unknown]
  - Pharyngeal erythema [Unknown]
  - Abdominal pain upper [Recovering/Resolving]
  - Mucosal disorder [Unknown]
  - Pyrexia [Unknown]
  - Dyspepsia [Recovering/Resolving]
  - Gastrooesophageal reflux disease [Unknown]
  - Dizziness [Unknown]
  - Restlessness [Unknown]
  - Tremor [Unknown]
  - Contusion [Unknown]
  - Nausea [Recovered/Resolved]
  - Freezing phenomenon [Unknown]
  - Gastritis [Unknown]
  - Urinary tract infection [Unknown]
  - Gastrointestinal disorder [Unknown]
  - Impaired healing [Unknown]
  - Tenderness [Unknown]
  - Pain in extremity [Unknown]
  - Weight decreased [Unknown]
  - Wound [Unknown]
  - Sense of oppression [Unknown]
  - Pancreatic steatosis [Unknown]
  - Haematuria [Unknown]
  - Bronchitis [Unknown]
  - Wound haemorrhage [Unknown]
  - Lumbar spinal stenosis [Unknown]
  - Tissue injury [Unknown]
  - Dry mouth [Unknown]
  - Faeces soft [Unknown]
  - Mitral valve incompetence [Unknown]
  - Influenza like illness [Unknown]
  - Asphyxia [Unknown]
  - Lymphadenopathy [Unknown]
  - Nail growth abnormal [Unknown]
  - Arthropathy [Unknown]
  - Chills [Unknown]
  - Abdominal pain [Unknown]
  - Hyperventilation [Unknown]
  - Transaminases increased [Unknown]
  - Chest pain [Unknown]
  - Vomiting [Recovering/Resolving]
  - Onychomycosis [Unknown]
  - Gastroenteritis [Unknown]
  - Nasopharyngitis [Unknown]
  - Adjustment disorder with depressed mood [Unknown]
  - Wound infection [Unknown]
  - Haematoma [Unknown]
  - Anxiety disorder [Unknown]
  - Skin laceration [Unknown]
  - Thoracic outlet syndrome [Unknown]
  - Invasive ductal breast carcinoma [Unknown]
  - Depression [Not Recovered/Not Resolved]
  - Product contamination [Unknown]
  - Pain [Unknown]
  - Vitamin D deficiency [Unknown]
  - Osteochondrosis [Unknown]
  - Overdose [Unknown]
  - Anxiety [Unknown]
  - Skin necrosis [Unknown]
  - Tendon disorder [Unknown]
  - Discomfort [Unknown]
  - Mucosal inflammation [Unknown]
  - Bladder cancer recurrent [Unknown]
  - Neck pain [Unknown]
  - Renal disorder [Unknown]
  - Merycism [Unknown]
  - Arthralgia [Unknown]
  - Post procedural swelling [Recovering/Resolving]
  - Pneumonia [Unknown]
  - Intervertebral disc degeneration [Unknown]
  - Oedema [Unknown]
  - Hiatus hernia [Unknown]
  - Injection site haematoma [Unknown]
  - Hyperhidrosis [Unknown]
  - Muscle spasms [Unknown]
  - Muscle tightness [Unknown]
  - Joint dislocation [Unknown]
  - Palpitations [Unknown]
  - Pharyngitis [Unknown]

NARRATIVE: CASE EVENT DATE: 20110401
